FAERS Safety Report 18153736 (Version 5)
Quarter: 2020Q4

REPORT INFORMATION
  Report Type: Report from Study
  Country: CO (occurrence: CO)
  Receive Date: 20200816
  Receipt Date: 20201014
  Transmission Date: 20210113
  Serious: Yes (Hospitalization, Other)
  Sender: FDA-Public Use
  Company Number: NVSC2020CO224724

PATIENT
  Sex: Female
  Weight: 69 kg

DRUGS (1)
  1. FEMARA [Suspect]
     Active Substance: LETROZOLE
     Indication: BREAST CANCER
     Dosage: 2.5 MG, QD
     Route: 048

REACTIONS (10)
  - Pneumonia [Recovered/Resolved with Sequelae]
  - Chest wall tumour [Unknown]
  - Neoplasm progression [Unknown]
  - Vocal cord disorder [Unknown]
  - Dyspnoea [Unknown]
  - Productive cough [Unknown]
  - Peripheral swelling [Unknown]
  - Obstructive airways disorder [Unknown]
  - Aphonia [Unknown]
  - Therapy non-responder [Unknown]
